FAERS Safety Report 20950956 (Version 2)
Quarter: 2022Q2

REPORT INFORMATION
  Report Type: Spontaneous
  Country: US (occurrence: US)
  Receive Date: 20220613
  Receipt Date: 20220617
  Transmission Date: 20220720
  Serious: Yes (Hospitalization)
  Sender: FDA-Public Use
  Company Number: US-SA-SAC20220609002010

PATIENT
  Age: 60 Year
  Sex: Male

DRUGS (1)
  1. CABLIVI [Suspect]
     Active Substance: CAPLACIZUMAB-YHDP
     Indication: Thrombotic microangiopathy
     Dosage: 11 MG, QD
     Route: 058
     Dates: start: 20220524

REACTIONS (2)
  - Muscle atrophy [Unknown]
  - ADAMTS13 activity abnormal [Not Recovered/Not Resolved]

NARRATIVE: CASE EVENT DATE: 20220101
